FAERS Safety Report 8389679-X (Version None)
Quarter: 2012Q2

REPORT INFORMATION
  Report Type: 
  Country: None (occurrence: None)
  Receive Date: 20120529
  Receipt Date: 20120518
  Transmission Date: 20120825
  Serious: Yes (Hospitalization)
  Sender: FDA-Public Use
  Company Number: DE-BIOGENIDEC-2012BI006758

PATIENT
  Age: 37 Year
  Sex: Male

DRUGS (6)
  1. CITALOPRAM HYDROBROMIDE [Concomitant]
  2. UROREC [Concomitant]
  3. TYSABRI [Suspect]
     Indication: RELAPSING-REMITTING MULTIPLE SCLEROSIS
     Route: 042
     Dates: start: 20110531
  4. PANTOPRAZOLE [Concomitant]
  5. IBUPROFEN [Concomitant]
  6. MIRTAZAPINE [Concomitant]

REACTIONS (1)
  - URETHRAL MEATUS STENOSIS [None]
